FAERS Safety Report 6864031-4 (Version None)
Quarter: 2010Q3

REPORT INFORMATION
  Report Type: 
  Country: None (occurrence: None)
  Receive Date: 20100721
  Receipt Date: 20080521
  Transmission Date: 20110219
  Serious: Yes (Other)
  Sender: FDA-Public Use
  Company Number: US-PFIZER INC-2008021979

PATIENT
  Sex: Male
  Weight: 93 kg

DRUGS (7)
  1. CHANTIX [Suspect]
     Indication: SMOKING CESSATION THERAPY
     Route: 048
     Dates: start: 20080101, end: 20080306
  2. CHANTIX [Suspect]
     Indication: TOBACCO ABUSE
  3. DIAZEPAM [Concomitant]
  4. CIALIS [Concomitant]
  5. DRUG, UNSPECIFIED [Concomitant]
  6. ALL OTHER THERAPEUTIC PRODUCTS [Concomitant]
     Indication: ASTHMA
  7. ALBUTEROL [Concomitant]

REACTIONS (13)
  - ABNORMAL DREAMS [None]
  - AGITATION [None]
  - DRUG INEFFECTIVE [None]
  - EMOTIONAL DISORDER [None]
  - FEELING ABNORMAL [None]
  - MALAISE [None]
  - MOOD SWINGS [None]
  - NERVOUSNESS [None]
  - NIGHTMARE [None]
  - SLEEP DISORDER [None]
  - SLEEP TALKING [None]
  - STRESS [None]
  - TREMOR [None]
